FAERS Safety Report 7755717-8 (Version None)
Quarter: 2011Q3

REPORT INFORMATION
  Report Type: 
  Country: None (occurrence: None)
  Receive Date: 20110914
  Receipt Date: 20110831
  Transmission Date: 20111222
  Serious: Yes (Hospitalization, Other)
  Sender: FDA-Public Use
  Company Number: 2011MA002939

PATIENT
  Age: 76 Year
  Sex: Female
  Weight: 61.2356 kg

DRUGS (60)
  1. CELEBREX [Concomitant]
  2. CIPROFLOXACIN [Concomitant]
  3. CLARITIN [Concomitant]
  4. ERY-TAB [Concomitant]
  5. GLUCOPHAGE [Concomitant]
  6. BAYCOL [Concomitant]
  7. LASIX [Concomitant]
  8. LOVENOX [Concomitant]
  9. CLARINEX [Concomitant]
  10. FOSAMAX [Concomitant]
  11. HYDROCODONE BITARTRATE AND ACETAMINOPHEN [Concomitant]
  12. BENICAR [Concomitant]
  13. MOBIC [Concomitant]
  14. LEVAQUIN [Concomitant]
  15. OMNICEF [Concomitant]
  16. PEPCID [Concomitant]
  17. PREDNISOLONE [Concomitant]
  18. PREVACID [Concomitant]
  19. TETRACYCLINE [Concomitant]
  20. VOLTAREN [Concomitant]
  21. ZANTAC [Concomitant]
  22. ZOCOR [Concomitant]
  23. CEFZIL [Concomitant]
  24. AVELOX [Concomitant]
  25. OCUFLOX [Concomitant]
  26. GUAIFENESIN/PSEUDOPHED [Concomitant]
  27. BIAXIN [Concomitant]
  28. MECLIZINE [Concomitant]
  29. NYSTATIN [Concomitant]
  30. AMBIEN [Concomitant]
  31. CEPHALEXIN [Concomitant]
  32. FAMOTIDINE [Concomitant]
  33. NITROGLYCERIN [Concomitant]
  34. ZELNORM [Concomitant]
  35. ANTIBIOTICS [Concomitant]
  36. METOCLOPRAMIDE [Suspect]
     Indication: GASTROOESOPHAGEAL REFLUX DISEASE
     Dosage: 10 MG;QID
     Dates: start: 19950117, end: 20060306
  37. APAP W/ CODEINE [Concomitant]
  38. CYMBALTA [Concomitant]
  39. ARICEPT [Concomitant]
  40. MIACALCAN [Concomitant]
  41. TRAMADOL [Concomitant]
  42. TRIAMCINOLONE [Concomitant]
  43. XOPENEX [Concomitant]
  44. ZETIA [Concomitant]
  45. ZITHROMAX [Concomitant]
  46. ERYTHROMYCIN [Concomitant]
  47. FUROSEMIDE [Concomitant]
  48. HUMULIN R [Concomitant]
  49. BUTALBITAL ACETAMINOPHEN AND CAFFEINE [Concomitant]
  50. METRONIDAZOLE [Concomitant]
  51. PRILOSEC [Concomitant]
  52. ULTRACET [Concomitant]
  53. ALTACE [Concomitant]
  54. COZAAR [Concomitant]
  55. ELAVIL [Concomitant]
  56. FLOXIN [Concomitant]
  57. LUNESTA [Concomitant]
  58. NASONEX [Concomitant]
  59. NEXIUM [Concomitant]
  60. PROTONIX [Concomitant]

REACTIONS (53)
  - INCORRECT DRUG ADMINISTRATION DURATION [None]
  - MOUTH ULCERATION [None]
  - FATIGUE [None]
  - COLONIC POLYP [None]
  - SYNCOPE [None]
  - LOSS OF CONSCIOUSNESS [None]
  - MOVEMENT DISORDER [None]
  - DEMENTIA ALZHEIMER'S TYPE [None]
  - DYSPHAGIA [None]
  - BRADYCARDIA [None]
  - EMOTIONAL DISORDER [None]
  - FAMILY STRESS [None]
  - WEIGHT DECREASED [None]
  - ASTHENIA [None]
  - URINE OUTPUT DECREASED [None]
  - DIABETES MELLITUS [None]
  - CLAVICLE FRACTURE [None]
  - URINARY TRACT INFECTION [None]
  - OSTEOARTHRITIS [None]
  - DIARRHOEA [None]
  - CARDIAC DISORDER [None]
  - MIGRAINE [None]
  - FEELING ABNORMAL [None]
  - RENAL FAILURE CHRONIC [None]
  - JAW FRACTURE [None]
  - CHOKING [None]
  - HEADACHE [None]
  - CHEST PAIN [None]
  - BUNDLE BRANCH BLOCK [None]
  - MYOCARDIAL ISCHAEMIA [None]
  - CARDIOMEGALY [None]
  - TARDIVE DYSKINESIA [None]
  - CARDIAC PACEMAKER INSERTION [None]
  - OEDEMA PERIPHERAL [None]
  - GASTROOESOPHAGEAL SPHINCTER INSUFFICIENCY [None]
  - OESOPHAGEAL DISORDER [None]
  - MYOCARDIAL INFARCTION [None]
  - FACIAL BONES FRACTURE [None]
  - ARTHRITIS [None]
  - SPEECH DISORDER [None]
  - LEFT VENTRICULAR DYSFUNCTION [None]
  - SINUSITIS [None]
  - DIZZINESS [None]
  - HIATUS HERNIA [None]
  - SLEEP DISORDER [None]
  - EXTRAPYRAMIDAL DISORDER [None]
  - ECONOMIC PROBLEM [None]
  - FACIAL PAIN [None]
  - HYPERLIPIDAEMIA [None]
  - ODYNOPHAGIA [None]
  - ANXIETY [None]
  - TRANSIENT ISCHAEMIC ATTACK [None]
  - PAIN IN EXTREMITY [None]
